FAERS Safety Report 7141060-7 (Version None)
Quarter: 2010Q4

REPORT INFORMATION
  Report Type: 
  Country: None (occurrence: None)
  Receive Date: 20101122
  Receipt Date: 20101109
  Transmission Date: 20110411
  Serious: Yes (Disabling, Other)
  Sender: FDA-Public Use
  Company Number: UK-ACCORD-002494

PATIENT
  Age: 71 Year
  Sex: Male

DRUGS (5)
  1. SIMVASTATIN [Suspect]
     Indication: HYPERCHOLESTEROLAEMIA
     Dosage: 10.00-MG-1.00 PER / ORAL -1.0 DAYS
     Route: 048
     Dates: start: 20031212, end: 20060223
  2. ACETAMINOPHEN [Concomitant]
  3. ASPIRIN [Concomitant]
  4. DOTHIEPIN HYDROCHLORIDE [Concomitant]
  5. PROPOXYPHENE HYDROCHLORIDE [Concomitant]

REACTIONS (7)
  - ALOPECIA [None]
  - CEREBROVASCULAR DISORDER [None]
  - ECONOMIC PROBLEM [None]
  - ELECTROENCEPHALOGRAM ABNORMAL [None]
  - ERECTILE DYSFUNCTION [None]
  - IMPAIRED WORK ABILITY [None]
  - TRANSIENT GLOBAL AMNESIA [None]
